FAERS Safety Report 12066532 (Version 1)
Quarter: 2016Q1

REPORT INFORMATION
  Report Type: Report from Study
  Country: US (occurrence: US)
  Receive Date: 20160211
  Receipt Date: 20160211
  Transmission Date: 20160526
  Serious: No
  Sender: FDA-Public Use
  Company Number: US-ABBVIE-16K-163-1530852-00

PATIENT
  Sex: Male
  Weight: 127.12 kg

DRUGS (3)
  1. HUMIRA [Suspect]
     Active Substance: ADALIMUMAB
     Dosage: 2 WEEKS LATER
     Route: 058
     Dates: start: 201508, end: 201508
  2. HUMIRA [Suspect]
     Active Substance: ADALIMUMAB
     Dosage: 2 WEEKS LATER
     Route: 058
     Dates: start: 2015
  3. HUMIRA [Suspect]
     Active Substance: ADALIMUMAB
     Indication: COLITIS ULCERATIVE
     Route: 058
     Dates: start: 201508, end: 201508

REACTIONS (4)
  - Back pain [Recovering/Resolving]
  - Abasia [Recovered/Resolved]
  - Pain in extremity [Recovering/Resolving]
  - Peripheral nerve infection [Recovering/Resolving]

NARRATIVE: CASE EVENT DATE: 2015
